FAERS Safety Report 16683983 (Version 1)
Quarter: 2019Q3

REPORT INFORMATION
  Report Type: Spontaneous
  Country: US (occurrence: US)
  Receive Date: 20190808
  Receipt Date: 20190808
  Transmission Date: 20191004
  Serious: No
  Sender: FDA-Public Use
  Company Number: US-CYCLE PHARMACEUTICALS LTD-2019-CYC-000003

PATIENT

DRUGS (1)
  1. NITYR [Suspect]
     Active Substance: NITISINONE
     Indication: TYROSINAEMIA
     Dosage: 8 MG, QD
     Dates: start: 20180619, end: 20190506

REACTIONS (1)
  - Product prescribing error [Recovered/Resolved]

NARRATIVE: CASE EVENT DATE: 20180619
